FAERS Safety Report 8439185 (Version 2)
Quarter: 2013Q2

REPORT INFORMATION
  Report Type: Spontaneous
  Country: US (occurrence: None)
  Receive Date: 20120104
  Receipt Date: 20120508
  Transmission Date: 20140414
  Serious: Yes (Other)
  Sender: FDA-Public Use
  Company Number: 2011HGS-002763

PATIENT
  Age: 37 Year
  Sex: Female
  Weight: 58.51 kg

DRUGS (8)
  1. BENLYSTA [Suspect]
     Indication: SYSTEMIC LUPUS ERYTHEMATOSUS
     Route: 041
     Dates: start: 20111020, end: 20111116
  2. PREDNISONE [Concomitant]
  3. PLAQUENIL (HYDROXYCHLOROQUINE SULFATE) (HYDROXYCHLOROQUINE SULFATE) [Concomitant]
  4. IMURAN [Concomitant]
  5. FORTEO (TERIPARATIDE) (TERIPARATIDE) [Concomitant]
  6. RESTASIS (CYCLOSPORINE) [Concomitant]
  7. IBUPROFEN [Concomitant]
  8. TRAMADOL HYDROCHLORIDE [Concomitant]

REACTIONS (5)
  - VULVOVAGINAL MYCOTIC INFECTION [None]
  - JOINT SWELLING [None]
  - ARTHRALGIA [None]
  - SYNOVIAL CYST [None]
  - DRUG INEFFECTIVE [None]
